FAERS Safety Report 20922238 (Version 7)
Quarter: 2023Q2

REPORT INFORMATION
  Report Type: Report from Study
  Country: US (occurrence: US)
  Receive Date: 20220607
  Receipt Date: 20230430
  Transmission Date: 20230722
  Serious: No
  Sender: FDA-Public Use
  Company Number: US-NOVARTISTESTPH-NVSC2022US128873

PATIENT
  Sex: Female
  Weight: 50.35 kg

DRUGS (2)
  1. COSENTYX [Suspect]
     Active Substance: SECUKINUMAB
     Indication: Psoriasis
     Dosage: 150 MG, QW (ONCE WEEKLY FOR 5 WEEKS)
     Route: 058
     Dates: start: 20220519
  2. COSENTYX [Suspect]
     Active Substance: SECUKINUMAB
     Dosage: 150 MG, QMO
     Route: 058

REACTIONS (8)
  - Sunburn [Unknown]
  - Injection site pain [Unknown]
  - Injection site bruising [Unknown]
  - Rebound psoriasis [Unknown]
  - Skin lesion [Recovered/Resolved]
  - Nasopharyngitis [Unknown]
  - Nasal congestion [Recovering/Resolving]
  - Injection site haemorrhage [Unknown]
